FAERS Safety Report 5929695-8 (Version None)
Quarter: 2008Q4

REPORT INFORMATION
  Report Type: 
  Country: None (occurrence: None)
  Receive Date: 20081024
  Receipt Date: 20081020
  Transmission Date: 20090506
  Serious: Yes (Other)
  Sender: FDA-Public Use
  Company Number: US-ELI_LILLY_AND_COMPANY-US200805000079

PATIENT
  Sex: Female
  Weight: 102.95 kg

DRUGS (7)
  1. BYETTA [Suspect]
     Indication: TYPE 2 DIABETES MELLITUS
     Dosage: 5 UG, UNK
     Route: 058
     Dates: start: 20080201, end: 20080401
  2. BYETTA [Suspect]
     Dosage: 5 UG, 2/D
     Route: 058
     Dates: start: 20080401, end: 20080501
  3. GLIMEPIRIDE [Concomitant]
     Indication: TYPE 2 DIABETES MELLITUS
     Dosage: 2 MG, DAILY (1/D)
  4. GLIMEPIRIDE [Concomitant]
     Dosage: 4 MG, 2/D
  5. ARMOUR THYROID [Concomitant]
     Dosage: 4 MG, DAILY (1/D)
  6. ARMOUR THYROID [Concomitant]
     Dosage: 20 MG, DAILY (1/D)
  7. METFORMIN HYDROCHLORIDE [Concomitant]
     Dosage: 1000 MG, 2/D

REACTIONS (7)
  - ABDOMINAL PAIN [None]
  - ANAEMIA [None]
  - BLOOD GLUCOSE INCREASED [None]
  - EAR PAIN [None]
  - EPISTAXIS [None]
  - NODULE [None]
  - SWELLING FACE [None]
